FAERS Safety Report 18695394 (Version 2)
Quarter: 2021Q2

REPORT INFORMATION
  Report Type: Report from Study
  Country: SA (occurrence: SA)
  Receive Date: 20210104
  Receipt Date: 20210510
  Transmission Date: 20210717
  Serious: Yes (Other)
  Sender: FDA-Public Use
  Company Number: SA-TEVA-2020-SA-1865752

PATIENT

DRUGS (8)
  1. MELPHALAN. [Concomitant]
     Active Substance: MELPHALAN
     Indication: LYMPHOMA
     Dosage: DAY ?1 BEFORE THE TRANSPLANT
     Route: 042
  2. ARA?C [Concomitant]
     Active Substance: CYTARABINE
     Indication: LYMPHOMA
     Dosage: FROM DAY ?5 UNTIL DAY ?2 (8 DOSES)
     Route: 042
  3. FLUCONAZOLE. [Concomitant]
     Active Substance: FLUCONAZOLE
     Indication: PROPHYLAXIS
     Route: 065
  4. LEVOFLOXACIN. [Concomitant]
     Active Substance: LEVOFLOXACIN
     Indication: PROPHYLAXIS
     Route: 065
  5. ETOPOSIDE. [Concomitant]
     Active Substance: ETOPOSIDE
     Indication: LYMPHOMA
     Dosage: FROM DAY ?5 TO DAY ?2
     Route: 042
  6. ACYCLOVIR [ACICLOVIR] [Concomitant]
     Active Substance: ACYCLOVIR
     Indication: PROPHYLAXIS
     Route: 065
  7. FILGRASTIM [Concomitant]
     Active Substance: FILGRASTIM
     Indication: PRODUCT USED FOR UNKNOWN INDICATION
     Route: 065
  8. BENDAMUSTINE HYDROCHLORIDE. [Suspect]
     Active Substance: BENDAMUSTINE HYDROCHLORIDE
     Indication: LYMPHOMA
     Dosage: ON DAYS ?7 AND ?6.
     Route: 042

REACTIONS (1)
  - Colitis [Recovered/Resolved]
